FAERS Safety Report 8147993-7 (Version None)
Quarter: 2012Q1

REPORT INFORMATION
  Report Type: 
  Country: None (occurrence: None)
  Receive Date: 20120218
  Receipt Date: 20110405
  Transmission Date: 20120608
  Serious: No
  Sender: FDA-Public Use
  Company Number: US-ALLERGAN-1104895US

PATIENT
  Age: 51 Year
  Sex: Female
  Weight: 58.957 kg

DRUGS (5)
  1. BOTULINUM TOXIN TYPE A [Suspect]
     Indication: SKIN WRINKLING
     Dosage: UNK
     Route: 030
     Dates: start: 20110224, end: 20110224
  2. MULTI-VITAMIN [Concomitant]
     Indication: PRODUCT USED FOR UNKNOWN INDICATION
     Dosage: UNK
  3. DYSPORT [Suspect]
     Indication: SKIN WRINKLING
     Dosage: 300 UNITS, SINGLE
     Dates: start: 20110224, end: 20110224
  4. KRILL OIL [Concomitant]
     Indication: PRODUCT USED FOR UNKNOWN INDICATION
  5. CALCIUM [Concomitant]
     Indication: PRODUCT USED FOR UNKNOWN INDICATION

REACTIONS (6)
  - NECK PAIN [None]
  - SINUSITIS [None]
  - FATIGUE [None]
  - MUSCULAR WEAKNESS [None]
  - INJECTION SITE DISCOMFORT [None]
  - HEADACHE [None]
